FAERS Safety Report 5300086-6 (Version None)
Quarter: 2007Q1

REPORT INFORMATION
  Report Type: 
  Country: None (occurrence: None)
  Receive Date: 20070201
  Receipt Date: 20061010
  Transmission Date: 20070707
  Serious: No
  Sender: FDA-Public Use
  Company Number: 2006PV022917

PATIENT
  Age: 64 Year
  Sex: Female

DRUGS (6)
  1. BYETTA [Suspect]
     Indication: DIABETES MELLITUS NON-INSULIN-DEPENDENT
     Dosage: 5 MCG BID SC ; 10 MCG QAM SC ; 10 MCG BID SC ; 5 MCG BID SC
     Route: 058
     Dates: start: 20060101, end: 20060101
  2. BYETTA [Suspect]
     Indication: DIABETES MELLITUS NON-INSULIN-DEPENDENT
     Dosage: 5 MCG BID SC ; 10 MCG QAM SC ; 10 MCG BID SC ; 5 MCG BID SC
     Route: 058
     Dates: start: 20060101, end: 20060101
  3. BYETTA [Suspect]
     Indication: DIABETES MELLITUS NON-INSULIN-DEPENDENT
     Dosage: 5 MCG BID SC ; 10 MCG QAM SC ; 10 MCG BID SC ; 5 MCG BID SC
     Route: 058
     Dates: start: 20060101, end: 20060101
  4. BYETTA [Suspect]
     Indication: DIABETES MELLITUS NON-INSULIN-DEPENDENT
     Dosage: 5 MCG BID SC ; 10 MCG QAM SC ; 10 MCG BID SC ; 5 MCG BID SC
     Route: 058
     Dates: start: 20060101
  5. METFORMIN HCL [Concomitant]
  6. LISINOPRIL [Concomitant]

REACTIONS (9)
  - BINGE EATING [None]
  - BLOOD GLUCOSE FLUCTUATION [None]
  - CONFUSIONAL STATE [None]
  - FOOD AVERSION [None]
  - HEADACHE [None]
  - INJECTION SITE IRRITATION [None]
  - NAUSEA [None]
  - TREMOR [None]
  - WEIGHT DECREASED [None]
